FAERS Safety Report 5334757-2 (Version None)
Quarter: 2007Q2

REPORT INFORMATION
  Report Type: 
  Country: None (occurrence: None)
  Receive Date: 20070525
  Receipt Date: 20070515
  Transmission Date: 20071010
  Serious: Yes (Hospitalization)
  Sender: FDA-Public Use
  Company Number: HQWYE227616MAY07

PATIENT
  Sex: Female

DRUGS (1)
  1. LEVONORGESTREL + ETHINYL ESTRADIOL [Suspect]
     Indication: ORAL CONTRACEPTION
     Dosage: UNKNOWN
     Route: 048
     Dates: start: 20011201, end: 20020301

REACTIONS (2)
  - DEEP VEIN THROMBOSIS [None]
  - POST THROMBOTIC SYNDROME [None]
